FAERS Safety Report 4616649-7 (Version None)
Quarter: 2005Q1

REPORT INFORMATION
  Report Type: 
  Country: None (occurrence: None)
  Receive Date: 20050321
  Receipt Date: 20040827
  Transmission Date: 20050727
  Serious: Yes (Life-Threatening, Hospitalization)
  Sender: FDA-Public Use
  Company Number: 8738

PATIENT
  Age: 73 Year
  Sex: Female

DRUGS (9)
  1. METHOTREXATE [Suspect]
     Indication: RHEUMATOID ARTHRITIS
     Dosage: 20 MG WEEKLY PO
     Route: 048
     Dates: start: 20000101, end: 20040701
  2. ROFECOXIB [Suspect]
     Indication: RHEUMATOID ARTHRITIS
     Dosage: 25 MG PO
     Route: 048
     Dates: start: 20040601, end: 20040701
  3. FOLIC ACID [Concomitant]
  4. CO-PROXAMOL [Concomitant]
  5. OMEPRAZOLE [Concomitant]
  6. ATORVASTATIN [Concomitant]
  7. CO-AMILOFRUSE [Concomitant]
  8. IRON SULPHATE [Concomitant]
  9. ASPIRIN [Concomitant]

REACTIONS (4)
  - DYSPNOEA [None]
  - HYPERHIDROSIS [None]
  - MYALGIA [None]
  - PNEUMONITIS [None]
